FAERS Safety Report 18055448 (Version 1)
Quarter: 2020Q3

REPORT INFORMATION
  Report Type: Spontaneous
  Country: US (occurrence: US)
  Receive Date: 20200722
  Receipt Date: 20200722
  Transmission Date: 20201103
  Serious: Yes (Hospitalization, Other)
  Sender: FDA-Public Use
  Company Number: US-PURDUE-USA-2020-0158298

PATIENT

DRUGS (1)
  1. OXYCONTIN [Suspect]
     Active Substance: OXYCODONE HYDROCHLORIDE
     Indication: GOUT
     Dosage: UNK
     Route: 048
     Dates: start: 201906

REACTIONS (6)
  - Functional gastrointestinal disorder [Unknown]
  - Surgery [Unknown]
  - Intestinal obstruction [Unknown]
  - Post procedural infection [Unknown]
  - Gastrointestinal perforation [Unknown]
  - Post procedural complication [Unknown]
